FAERS Safety Report 24931846 (Version 1)
Quarter: 2025Q1

REPORT INFORMATION
  Report Type: Report from Study
  Country: US (occurrence: US)
  Receive Date: 20250205
  Receipt Date: 20250205
  Transmission Date: 20250409
  Serious: No
  Sender: EXELIXIS
  Company Number: US-EXELIXIS-CABO-24078993

PATIENT
  Age: 64 Year
  Sex: Male
  Weight: 97.959 kg

DRUGS (4)
  1. CABOMETYX [Suspect]
     Active Substance: CABOZANTINIB S-MALATE
     Indication: Renal cancer
     Dosage: 20 MG, QD
     Route: 048
     Dates: start: 20220406
  2. VITAMIN C [Concomitant]
     Active Substance: ASCORBIC ACID
  3. THIAMINE HYDROCHLORIDE [Concomitant]
     Active Substance: THIAMINE HYDROCHLORIDE
  4. GARLIC [Concomitant]
     Active Substance: GARLIC

REACTIONS (8)
  - Swollen tongue [Unknown]
  - Ageusia [Unknown]
  - Tongue biting [Unknown]
  - Speech disorder [Unknown]
  - Peripheral swelling [Unknown]
  - Ear pain [Unknown]
  - Ear infection [Unknown]
  - Cough [Unknown]

NARRATIVE: CASE EVENT DATE: 20240601
